FAERS Safety Report 4361791-1 (Version None)
Quarter: 2004Q2

REPORT INFORMATION
  Report Type: 
  Country: None (occurrence: None)
  Receive Date: 20040521
  Receipt Date: 20040315
  Transmission Date: 20050107
  Serious: No
  Sender: FDA-Public Use
  Company Number: US-GLAXOSMITHKLINE-A0502847A

PATIENT
  Sex: Female

DRUGS (3)
  1. WELLBUTRIN XL [Suspect]
     Dosage: 300MG PER DAY
     Route: 048
  2. VALTREX [Concomitant]
  3. ORAL CONTRACEPTIVES [Concomitant]

REACTIONS (4)
  - ANXIETY [None]
  - MOUTH ULCERATION [None]
  - SWOLLEN TONGUE [None]
  - UNEXPECTED THERAPEUTIC DRUG EFFECT [None]
